FAERS Safety Report 7885414-X (Version None)
Quarter: 2011Q4

REPORT INFORMATION
  Report Type: 
  Country: None (occurrence: None)
  Receive Date: 20111102
  Receipt Date: 20111024
  Transmission Date: 20120403
  Serious: Yes (Hospitalization)
  Sender: FDA-Public Use
  Company Number: AU-ELI_LILLY_AND_COMPANY-AU201109007232

PATIENT
  Sex: Male
  Weight: 67 kg

DRUGS (12)
  1. DIGOXIN                            /00545901/ [Concomitant]
     Dosage: UNK
     Dates: start: 20111005
  2. ENOXAPARIN SODIUM [Concomitant]
     Dosage: UNK
  3. MAGMIN [Concomitant]
     Dosage: UNK
  4. GEMCITABINE HYDROCHLORIDE [Suspect]
     Indication: NON-SMALL CELL LUNG CANCER STAGE IV
     Dosage: 1710 MG, 21 DAYS/CYCLE
     Route: 042
     Dates: start: 20110701
  5. METOPROLOL                         /00376902/ [Concomitant]
     Dosage: UNK
     Dates: end: 20110930
  6. CISPLATIN [Suspect]
     Indication: NON-SMALL CELL LUNG CANCER STAGE IV
     Dosage: 138 MG, 21 DAYS/CYLE
     Route: 042
     Dates: start: 20110701
  7. OMEPRAZOLE [Concomitant]
     Dosage: UNK
  8. PHOSPHATE-SANDOZ [Concomitant]
     Dosage: UNK
  9. VENLAFAXINE [Concomitant]
     Dosage: UNK
  10. ACETAMINOPHEN [Concomitant]
     Dosage: UNK
  11. SLOW-K [Concomitant]
     Dosage: UNK
  12. NITROGLYCERIN [Concomitant]
     Dosage: UNK
     Dates: end: 20110927

REACTIONS (1)
  - DIZZINESS [None]
